FAERS Safety Report 21619620 (Version 1)
Quarter: 2022Q4

REPORT INFORMATION
  Report Type: Report from Study
  Country: US (occurrence: US)
  Receive Date: 20221121
  Receipt Date: 20221121
  Transmission Date: 20230113
  Serious: No
  Sender: FDA-Public Use
  Company Number: US-ABBVIE-4191551

PATIENT
  Age: 71 Year
  Sex: Female
  Weight: 85.275 kg

DRUGS (4)
  1. HUMIRA [Suspect]
     Active Substance: ADALIMUMAB
     Indication: Crohn^s disease
     Dosage: STRENGTH 40 MG
     Route: 058
     Dates: start: 2010
  2. HUMIRA [Suspect]
     Active Substance: ADALIMUMAB
     Indication: Rheumatoid arthritis
  3. MESALAMINE [Concomitant]
     Active Substance: MESALAMINE
     Indication: Constipation
  4. MIRALAX [Concomitant]
     Active Substance: POLYETHYLENE GLYCOL 3350
     Indication: Constipation

REACTIONS (12)
  - Staphylococcal infection [Recovered/Resolved]
  - Crohn^s disease [Recovering/Resolving]
  - Abdominal discomfort [Recovering/Resolving]
  - Bacillus infection [Recovered/Resolved]
  - Rhinorrhoea [Recovered/Resolved]
  - Defaecation urgency [Recovering/Resolving]
  - Nasal discomfort [Recovered/Resolved]
  - Viral infection [Recovered/Resolved]
  - Sneezing [Recovered/Resolved]
  - Nasal congestion [Recovered/Resolved]
  - Escherichia infection [Recovered/Resolved]
  - Nasopharyngitis [Recovered/Resolved]

NARRATIVE: CASE EVENT DATE: 20220801
